FAERS Safety Report 7245919-1 (Version None)
Quarter: 2011Q1

REPORT INFORMATION
  Report Type: 
  Country: None (occurrence: None)
  Receive Date: 20110126
  Receipt Date: 20110121
  Transmission Date: 20110831
  Serious: Yes (Death)
  Sender: FDA-Public Use
  Company Number: NL-ABBOTT-11P-114-0699728-00

PATIENT
  Sex: Male

DRUGS (5)
  1. ESOMEPRAZOLE MAGNESIUM [Concomitant]
     Indication: PROPHYLAXIS
     Dosage: MSR 40MG DAILU
     Route: 048
  2. TAMSULOSINE MGA 0.4MG [Concomitant]
     Indication: PROSTATE CANCER
     Route: 048
  3. LUCRIN DEPOT 11.25 MG [Suspect]
     Route: 058
     Dates: start: 20100803, end: 20100803
  4. ESOMEPRAZOLE MAGNESIUM [Concomitant]
     Indication: GASTRIC DISORDER
  5. LUCRIN DEPOT 11.25 MG [Suspect]
     Indication: PROSTATE CANCER
     Route: 058
     Dates: start: 20060620, end: 20100510

REACTIONS (1)
  - DEATH [None]
